FAERS Safety Report 11283235 (Version 1)
Quarter: 2015Q3

REPORT INFORMATION
  Report Type: Spontaneous
  Country: DE (occurrence: DE)
  Receive Date: 20150720
  Receipt Date: 20150720
  Transmission Date: 20151125
  Serious: Yes (Other)
  Sender: FDA-Public Use
  Company Number: DE-PFIZER INC-2015233885

PATIENT
  Age: 34 Year
  Sex: Female
  Weight: 64 kg

DRUGS (8)
  1. AMOXICLAV /01245101/ [Concomitant]
     Indication: BRONCHITIS
     Dosage: 28.2. - 28.2. GESTATIONAL WEEK
     Route: 048
  2. PARACETAMOL [Concomitant]
     Active Substance: ACETAMINOPHEN
     Indication: BRONCHITIS
     Dosage: 28.2. - 28.2. GESTATIONAL WEEK
     Route: 048
  3. IBUPROFEN. [Concomitant]
     Active Substance: IBUPROFEN
     Indication: BRONCHITIS
     Dosage: 28.2. - 28.2. GESTATIONAL WEEK
     Route: 048
  4. SERTRALINE HCL [Suspect]
     Active Substance: SERTRALINE HYDROCHLORIDE
     Indication: DEPRESSION
     Dosage: 150 MG, 1X/DAY, 0. - 36.6. GESTATIONAL WEEK
     Route: 048
     Dates: start: 20140328
  5. RISPERDAL [Suspect]
     Active Substance: RISPERIDONE
     Indication: ANXIETY
     Dosage: 2 MG, 1X/DAY, 8. - 36.6. GESTATIONAL WEEK
     Route: 048
  6. TAVOR [Suspect]
     Active Substance: LORAZEPAM
     Indication: PANIC REACTION
     Dosage: 0.5 MG, AS NEEDED, 0. - 26. GESTATIONAL WEEK
     Route: 048
  7. TAVOR [Suspect]
     Active Substance: LORAZEPAM
     Dosage: DOSAGE BETWEEN 30 AND 75 MG, 9. - 10. GESTATIONAL WEEK
     Route: 048
  8. FOLIC ACID. [Concomitant]
     Active Substance: FOLIC ACID
     Indication: PROPHYLAXIS OF NEURAL TUBE DEFECT
     Dosage: 7.1. - 30. GESTATIONAL WEEK
     Route: 048

REACTIONS (4)
  - Suicide attempt [Recovered/Resolved]
  - Premature rupture of membranes [Unknown]
  - Bronchitis [Recovered/Resolved]
  - Pleurisy [Recovered/Resolved]
